FAERS Safety Report 16971205 (Version 3)
Quarter: 2020Q1

REPORT INFORMATION
  Report Type: Spontaneous
  Country: US (occurrence: US)
  Receive Date: 20191029
  Receipt Date: 20200309
  Transmission Date: 20200409
  Serious: Yes (Other)
  Sender: FDA-Public Use
  Company Number: US-JNJFOC-20191029158

PATIENT
  Age: 60 Year
  Sex: Female
  Weight: 54.43 kg

DRUGS (4)
  1. TREMFYA [Suspect]
     Active Substance: GUSELKUMAB
     Route: 030
     Dates: start: 20180301
  2. CELEXA [Interacting]
     Active Substance: CITALOPRAM HYDROBROMIDE
  3. ZOLOFT [Suspect]
     Active Substance: SERTRALINE HYDROCHLORIDE
     Indication: ANXIETY
     Route: 065
     Dates: start: 20190113, end: 20190518
  4. TREMFYA [Suspect]
     Active Substance: GUSELKUMAB
     Indication: PSORIASIS
     Route: 058
     Dates: start: 201901, end: 201904

REACTIONS (8)
  - Alopecia [Recovered/Resolved]
  - Incorrect route of product administration [Unknown]
  - Systemic infection [Recovered/Resolved]
  - Depression [Recovered/Resolved]
  - Anxiety [Recovering/Resolving]
  - Hypoaesthesia [Recovered/Resolved]
  - Drug interaction [Not Recovered/Not Resolved]
  - Off label use [Unknown]

NARRATIVE: CASE EVENT DATE: 20180301
